FAERS Safety Report 7586693-9 (Version None)
Quarter: 2011Q3

REPORT INFORMATION
  Report Type: 
  Country: None (occurrence: None)
  Receive Date: 20110701
  Receipt Date: 20110616
  Transmission Date: 20111222
  Serious: Yes (Other)
  Sender: FDA-Public Use
  Company Number: ES-BAYER-2011-051721

PATIENT
  Age: 80 Year
  Sex: Female
  Weight: 54.5 kg

DRUGS (5)
  1. OMEPRAZOLE [Interacting]
     Dosage: 20 MG, HS
     Route: 048
     Dates: start: 20081201
  2. ASPIRIN [Suspect]
     Indication: MYOCARDIAL ISCHAEMIA
     Dosage: 100 MG, HS
     Route: 048
     Dates: start: 20081113
  3. PAROXETINE HCL [Interacting]
     Indication: SYNCOPE
     Dosage: 20 MG, HS
     Route: 048
     Dates: start: 20090629
  4. NITRODERM [Concomitant]
     Indication: MYOCARDIAL ISCHAEMIA
     Dosage: 25 MG, HS
     Route: 062
     Dates: start: 20081113
  5. AMOXICILLIN [Interacting]
     Indication: PHARYNGITIS
     Dosage: 1 G/ 12 H.
     Route: 048
     Dates: start: 20110418, end: 20110424

REACTIONS (1)
  - HEPATITIS ACUTE [None]
